FAERS Safety Report 25687065 (Version 1)
Quarter: 2025Q3

REPORT INFORMATION
  Report Type: Spontaneous
  Country: CH (occurrence: CH)
  Receive Date: 20250816
  Receipt Date: 20250816
  Transmission Date: 20251021
  Serious: Yes (Hospitalization)
  Sender: ACCORD
  Company Number: CH-MLMSERVICE-20250728-PI593143-00137-1

PATIENT
  Age: 63 Year
  Sex: Male

DRUGS (2)
  1. ESOMEPRAZOLE [Interacting]
     Active Substance: ESOMEPRAZOLE
     Indication: Product used for unknown indication
  2. HYDROCHLOROTHIAZIDE [Interacting]
     Active Substance: HYDROCHLOROTHIAZIDE
     Indication: Product used for unknown indication

REACTIONS (8)
  - Hypomagnesaemia [Recovering/Resolving]
  - Hypokalaemia [Recovering/Resolving]
  - Hypocalcaemia [Recovering/Resolving]
  - Metabolic alkalosis [Recovering/Resolving]
  - Hypocalciuria [Recovering/Resolving]
  - Hypermagnesuria [Recovering/Resolving]
  - Hyperchloruria [Recovering/Resolving]
  - Drug interaction [Unknown]
